FAERS Safety Report 25069566 (Version 1)
Quarter: 2025Q1

REPORT INFORMATION
  Report Type: Spontaneous
  Country: CN (occurrence: CN)
  Receive Date: 20250312
  Receipt Date: 20250312
  Transmission Date: 20250408
  Serious: Yes (Other)
  Sender: Kenvue
  Company Number: CN-KENVUE-20250302271

PATIENT

DRUGS (1)
  1. TYLENOL [Suspect]
     Active Substance: ACETAMINOPHEN
     Indication: Auditory neuropathy spectrum disorder
     Dosage: 1 DOSAGE FORM, TWICE A DAY
     Route: 048
     Dates: start: 20250206, end: 20250208

REACTIONS (2)
  - Inappropriate schedule of product administration [Unknown]
  - Drug eruption [Recovering/Resolving]

NARRATIVE: CASE EVENT DATE: 20250206
